FAERS Safety Report 6114449-2 (Version None)
Quarter: 2009Q1

REPORT INFORMATION
  Report Type: 
  Country: None (occurrence: None)
  Receive Date: 20090313
  Receipt Date: 20090305
  Transmission Date: 20090719
  Serious: Yes (Hospitalization)
  Sender: FDA-Public Use
  Company Number: PHHY2009JP08349

PATIENT
  Age: 70 Year
  Sex: Male

DRUGS (3)
  1. NEORAL [Suspect]
     Route: 048
  2. ICL670A ICL+DISTAB [Suspect]
     Indication: IRON OVERLOAD
     Dosage: 1500 MG, QD
     Route: 048
     Dates: start: 20080916, end: 20081201
  3. STEROIDS NOS [Suspect]

REACTIONS (1)
  - INTERSTITIAL LUNG DISEASE [None]
